FAERS Safety Report 8105077-8 (Version None)
Quarter: 2012Q1

REPORT INFORMATION
  Report Type: 
  Country: None (occurrence: None)
  Receive Date: 20120130
  Receipt Date: 20120117
  Transmission Date: 20120608
  Serious: Yes (Hospitalization)
  Sender: FDA-Public Use
  Company Number: 1167768

PATIENT
  Age: 48 Year
  Sex: Female

DRUGS (10)
  1. CISPLATIN [Suspect]
     Indication: BRONCHIAL CARCINOMA
     Dosage: 125 MG, 1 IN 1 ACCORDING  TO CYCLE, INTRAVENOUS DRIP
     Route: 041
     Dates: start: 20111109, end: 20111128
  2. NEULASTA [Concomitant]
  3. CHLORPROMAZINE HCL [Concomitant]
  4. METHYLPREDNISOLONE [Concomitant]
  5. CLORAZEPATE DIPOTASSIUM [Concomitant]
  6. GRANISETRON [Concomitant]
  7. DOCETAXEL [Suspect]
     Indication: BRONCHIAL CARCINOMA
     Dosage: 120 MG, 1 IN 1 ACCORDING TO CYCLE, INTRAVENOUS DRIP  (2 COURSES)
     Route: 041
     Dates: start: 20111109, end: 20111128
  8. RANITIDINE [Concomitant]
  9. DEXCHLORPHENIRAMINE MALEATE [Concomitant]
  10. (GLUCIDION) [Concomitant]

REACTIONS (4)
  - FEBRILE BONE MARROW APLASIA [None]
  - DYSGEUSIA [None]
  - PALMAR-PLANTAR ERYTHRODYSAESTHESIA SYNDROME [None]
  - APHTHOUS STOMATITIS [None]
